FAERS Safety Report 21372465 (Version 2)
Quarter: 2022Q3

REPORT INFORMATION
  Report Type: Spontaneous
  Country: LB (occurrence: LB)
  Receive Date: 20220924
  Receipt Date: 20220927
  Transmission Date: 20221026
  Serious: Yes (Death, Life-Threatening, Other)
  Sender: FDA-Public Use
  Company Number: LB-BoehringerIngelheim-2022-BI-191890

PATIENT
  Age: 77 Year
  Sex: Male

DRUGS (2)
  1. PRADAXA [Suspect]
     Active Substance: DABIGATRAN ETEXILATE MESYLATE
     Indication: Atrial fibrillation
  2. Lovenox (Enoxaparin) [Concomitant]
     Indication: Product used for unknown indication

REACTIONS (3)
  - Cardiogenic shock [Fatal]
  - Cardiac arrest [Fatal]
  - Gastrointestinal haemorrhage [Recovered/Resolved]
